FAERS Safety Report 5131646-3 (Version None)
Quarter: 2006Q4

REPORT INFORMATION
  Report Type: 
  Country: None (occurrence: None)
  Receive Date: 20061020
  Receipt Date: 20061012
  Transmission Date: 20070319
  Serious: Yes (Life-Threatening, Hospitalization)
  Sender: FDA-Public Use
  Company Number: JP-JNJFOC-20061003373

PATIENT
  Age: 63 Year
  Sex: Male

DRUGS (6)
  1. RISPERDAL [Suspect]
     Route: 048
  2. RISPERDAL [Suspect]
     Route: 048
  3. RISPERDAL [Suspect]
     Route: 048
  4. RISPERDAL [Suspect]
     Indication: CONFUSIONAL STATE
     Route: 048
  5. VEGETAMIN-A [Suspect]
     Route: 048
  6. VEGETAMIN-A [Suspect]
     Indication: INSOMNIA
     Route: 048

REACTIONS (1)
  - RHABDOMYOLYSIS [None]
